FAERS Safety Report 10970929 (Version 1)
Quarter: 2015Q1

REPORT INFORMATION
  Report Type: Report from Study
  Country: NZ (occurrence: NZ)
  Receive Date: 20150331
  Receipt Date: 20150331
  Transmission Date: 20150721
  Serious: Yes (Other)
  Sender: FDA-Public Use
  Company Number: PHHY2015NZ034370

PATIENT
  Sex: Female

DRUGS (2)
  1. CLOZARIL [Suspect]
     Active Substance: CLOZAPINE
     Indication: SCHIZOAFFECTIVE DISORDER
     Dosage: UNK
     Route: 048
     Dates: start: 20100311
  2. CLOZARIL [Suspect]
     Active Substance: CLOZAPINE
     Dosage: 300 MG, QHS
     Route: 048

REACTIONS (2)
  - Schizoaffective disorder [Recovered/Resolved]
  - Disease recurrence [Recovered/Resolved]
